FAERS Safety Report 6325493-4 (Version None)
Quarter: 2009Q3

REPORT INFORMATION
  Report Type: 
  Country: None (occurrence: None)
  Receive Date: 20090824
  Receipt Date: 20090707
  Transmission Date: 20100115
  Serious: No
  Sender: FDA-Public Use
  Company Number: US-ABBOTT-09P-163-0584264-00

PATIENT
  Sex: Male
  Weight: 104.87 kg

DRUGS (17)
  1. NIASPAN [Suspect]
     Indication: BLOOD CHOLESTEROL INCREASED
     Route: 048
     Dates: start: 20090428, end: 20090512
  2. NIASPAN [Suspect]
     Route: 048
     Dates: start: 20090513, end: 20090617
  3. NORVASC [Suspect]
     Indication: HYPERTENSION
     Route: 048
     Dates: start: 20090708
  4. NORVASC [Suspect]
     Route: 048
     Dates: end: 20090707
  5. ASPIRIN [Concomitant]
     Indication: DRUG USE FOR UNKNOWN INDICATION
     Dosage: ASPIRIN
     Route: 048
  6. LANTUS [Concomitant]
     Indication: DIABETES MELLITUS
     Route: 058
  7. METOPROLOL [Concomitant]
     Indication: HYPERTENSION
     Route: 048
  8. LASIX [Concomitant]
     Indication: DIURETIC THERAPY
     Route: 048
  9. REGLAN [Concomitant]
     Indication: GASTROOESOPHAGEAL REFLUX DISEASE
  10. RANITIDINE [Concomitant]
     Indication: GASTROOESOPHAGEAL REFLUX DISEASE
     Route: 048
  11. NITROGLYCERIN [Concomitant]
     Indication: ANGINA PECTORIS
     Route: 060
  12. HUMULOG INSULIN [Concomitant]
     Indication: DIABETES MELLITUS
     Dosage: 16U AM, 20U LUNCH, 20U PM, PLUS SLIDING SCALE
     Route: 058
  13. CYCLOSPORINE [Concomitant]
     Indication: RENAL TRANSPLANT
     Route: 048
  14. COUMADIN [Concomitant]
     Indication: ANTICOAGULANT THERAPY
     Dosage: 6 MG FIVE TIMES/WK , 7MG TWO TIMES/WEEK
     Route: 048
  15. PREDNISONE TAB [Concomitant]
     Indication: DRUG USE FOR UNKNOWN INDICATION
     Route: 048
  16. CELLCEPT [Concomitant]
     Indication: RENAL TRANSPLANT
     Route: 048
  17. COMPAZINE [Concomitant]
     Indication: DRUG USE FOR UNKNOWN INDICATION
     Route: 048

REACTIONS (4)
  - DYSPNOEA [None]
  - OEDEMA PERIPHERAL [None]
  - PULMONARY OEDEMA [None]
  - WEIGHT INCREASED [None]
